FAERS Safety Report 8269742 (Version 6)
Quarter: 2012Q4

REPORT INFORMATION
  Report Type: 
  Country: US (occurrence: US)
  Receive Date: 20111130
  Receipt Date: 20120905
  Transmission Date: 20130627
  Serious: Yes (Life-Threatening, Hospitalization, Other)
  Sender: FDA-Public Use
  Company Number: US-ASTRAZENECA-2011SE52503

PATIENT
  Age: 86 Year
  Sex: Male

DRUGS (4)
  1. CRESTOR [Suspect]
     Route: 048
  2. TRAMADOL [Concomitant]
  3. HYDROCODONE [Concomitant]
  4. ANTIDEPRESSANT [Concomitant]

REACTIONS (39)
  - Colon cancer [Unknown]
  - Bladder cancer [Unknown]
  - Neoplasm malignant [Unknown]
  - Renal failure [Unknown]
  - Cardiac disorder [Unknown]
  - Spondylitis [Unknown]
  - Coronary artery disease [Unknown]
  - Ventricular tachycardia [Unknown]
  - Ejection fraction decreased [Unknown]
  - Ventricular fibrillation [Unknown]
  - Renal cancer [Unknown]
  - Renal failure chronic [Unknown]
  - Atrial fibrillation [Unknown]
  - Gout [Unknown]
  - Dyslipidaemia [Unknown]
  - Gastrooesophageal reflux disease [Unknown]
  - Glaucoma [Unknown]
  - Benign prostatic hyperplasia [Unknown]
  - Nephrolithiasis [Unknown]
  - Diverticulum intestinal [Unknown]
  - Cholelithiasis [Unknown]
  - Diarrhoea [Unknown]
  - Spinal osteoarthritis [Unknown]
  - Back pain [Unknown]
  - Medical device pain [Unknown]
  - Weight decreased [Unknown]
  - Hyperhidrosis [Unknown]
  - Hot flush [Unknown]
  - Vertigo [Unknown]
  - Arthritis [Unknown]
  - Arthritis [Unknown]
  - Kidney infection [Unknown]
  - Vomiting [Unknown]
  - Headache [Unknown]
  - Dizziness [Unknown]
  - Depression [Unknown]
  - Fatigue [Unknown]
  - Insomnia [Unknown]
  - Drug dose omission [Unknown]
